FAERS Safety Report 11919507 (Version 1)
Quarter: 2016Q1

REPORT INFORMATION
  Report Type: Spontaneous
  Country: US (occurrence: None)
  Receive Date: 20160114
  Receipt Date: 20160114
  Transmission Date: 20160526
  Serious: Yes (Other)
  Sender: FDA-Public Use
  Company Number: None

PATIENT
  Age: 69 Year
  Sex: Male
  Weight: 61.2 kg

DRUGS (2)
  1. METHYLPREDNISOLONE. [Suspect]
     Active Substance: METHYLPREDNISOLONE
     Indication: UPPER GASTROINTESTINAL HAEMORRHAGE
     Dosage: MG TID PO
     Route: 048
     Dates: start: 20150915, end: 20151006
  2. ETODOLAC. [Suspect]
     Active Substance: ETODOLAC
     Indication: UPPER GASTROINTESTINAL HAEMORRHAGE
     Dosage: MG
     Route: 048
     Dates: start: 20150915, end: 20151106

REACTIONS (4)
  - Upper gastrointestinal haemorrhage [None]
  - Oesophageal ulcer [None]
  - Haemoglobin decreased [None]
  - Laboratory test abnormal [None]

NARRATIVE: CASE EVENT DATE: 20151005
